FAERS Safety Report 15469053 (Version 1)
Quarter: 2018Q4

REPORT INFORMATION
  Report Type: Report from Study
  Country: MK (occurrence: MK)
  Receive Date: 20181005
  Receipt Date: 20181005
  Transmission Date: 20190205
  Serious: Yes (Other)
  Sender: FDA-Public Use
  Company Number: MK-TOLMAR, INC.-TOLG20180557

PATIENT
  Age: 23 Year
  Sex: Female

DRUGS (2)
  1. CARBAMAZEPINE. [Concomitant]
     Active Substance: CARBAMAZEPINE
     Indication: PARTIAL SEIZURES
     Dosage: UNKNOWN
     Route: 065
  2. LEVETIRACETAM. [Suspect]
     Active Substance: LEVETIRACETAM
     Indication: PARTIAL SEIZURES
     Dosage: MAXIMUM DOSE 2000 MG
     Route: 065

REACTIONS (7)
  - Seizure [Recovered/Resolved]
  - Tonic convulsion [Recovered/Resolved]
  - Screaming [Recovered/Resolved]
  - Partial seizures [Recovered/Resolved]
  - Myoclonic epilepsy [Recovered/Resolved]
  - Altered state of consciousness [Recovered/Resolved]
  - Change in seizure presentation [Recovered/Resolved]
